FAERS Safety Report 18125063 (Version 1)
Quarter: 2020Q3

REPORT INFORMATION
  Report Type: Spontaneous
  Country: US (occurrence: US)
  Receive Date: 20200807
  Receipt Date: 20200807
  Transmission Date: 20201103
  Serious: Yes (Other)
  Sender: FDA-Public Use
  Company Number: US-PFIZER INC-2020057126

PATIENT
  Age: 67 Year
  Sex: Female
  Weight: 83.46 kg

DRUGS (3)
  1. CELEBREX [Suspect]
     Active Substance: CELECOXIB
     Dosage: 100 MG, 2X/DAY
     Route: 048
     Dates: start: 20200702
  2. CELEBREX [Suspect]
     Active Substance: CELECOXIB
     Indication: PAIN
     Dosage: 100 MG, 1X/DAY
  3. CELEBREX [Suspect]
     Active Substance: CELECOXIB
     Indication: ARTHRITIS
     Dosage: 100 MG, AS NEEDED
     Route: 048
     Dates: start: 201710

REACTIONS (4)
  - Chronic kidney disease [Unknown]
  - Intentional product misuse [Unknown]
  - Weight decreased [Unknown]
  - Therapeutic product effect incomplete [Unknown]
